FAERS Safety Report 9076795 (Version 1)
Quarter: 2013Q1

REPORT INFORMATION
  Report Type: Spontaneous
  Country: US (occurrence: US)
  Receive Date: 20130129
  Receipt Date: 20130129
  Transmission Date: 20140127
  Serious: No
  Sender: FDA-Public Use
  Company Number: US-ABBOTT-12P-163-0908925-00

PATIENT
  Sex: Female

DRUGS (1)
  1. HUMIRA 40 MG/ 0.8 ML PRE-FILLED SYRINGE [Suspect]
     Indication: PRODUCT USED FOR UNKNOWN INDICATION

REACTIONS (10)
  - Cutaneous lupus erythematosus [Unknown]
  - Rash papular [Unknown]
  - Rash papular [Unknown]
  - Rash papular [Unknown]
  - Burning sensation [Unknown]
  - Burning sensation [Unknown]
  - Burning sensation [Unknown]
  - Pain [None]
  - Pain [None]
  - Pain [None]
